FAERS Safety Report 9111565 (Version 1)
Quarter: 2013Q1

REPORT INFORMATION
  Report Type: Spontaneous
  Country: US (occurrence: US)
  Receive Date: 20130219
  Receipt Date: 20130219
  Transmission Date: 20140127
  Serious: No
  Sender: FDA-Public Use
  Company Number: US-BRISTOL-MYERS SQUIBB COMPANY-16570632

PATIENT
  Age: 44 Year
  Sex: Female

DRUGS (2)
  1. ORENCIA [Suspect]
     Indication: RHEUMATOID ARTHRITIS
     Dosage: LAST OF INFUSION 12APR12?4 VIALS
     Route: 042
     Dates: start: 200704
  2. METHOTREXATE [Concomitant]
     Dates: start: 199307, end: 200801

REACTIONS (1)
  - Dental caries [Unknown]
